FAERS Safety Report 5740780-6 (Version None)
Quarter: 2008Q2

REPORT INFORMATION
  Report Type: 
  Country: None (occurrence: None)
  Receive Date: 20080516
  Receipt Date: 20080508
  Transmission Date: 20081010
  Serious: Yes (Hospitalization, Disabling, Other)
  Sender: FDA-Public Use
  Company Number: GB-PFIZER INC-2007050273

PATIENT
  Age: 55 Year
  Sex: Female

DRUGS (3)
  1. NELFINAVIR MESILATE [Suspect]
     Indication: PROPHYLAXIS
     Route: 048
     Dates: start: 20070509, end: 20070511
  2. COMBIVIR [Suspect]
     Indication: PROPHYLAXIS
     Route: 048
     Dates: start: 20070509, end: 20070511
  3. COZAAR [Concomitant]

REACTIONS (3)
  - FASCIITIS [None]
  - NEUROPATHY PERIPHERAL [None]
  - PARAESTHESIA [None]
